FAERS Safety Report 17835447 (Version 1)
Quarter: 2020Q2

REPORT INFORMATION
  Report Type: Spontaneous
  Country: US (occurrence: US)
  Receive Date: 20200528
  Receipt Date: 20200528
  Transmission Date: 20200714
  Serious: No
  Sender: FDA-Public Use
  Company Number: US-CURRAX PHARMACEUTICALS LLC-US-2019PER000120

PATIENT
  Sex: Female
  Weight: 49.89 kg

DRUGS (3)
  1. TREXIMET [Suspect]
     Active Substance: NAPROXEN SODIUM\SUMATRIPTAN SUCCINATE
     Indication: PRODUCT USED FOR UNKNOWN INDICATION
     Dosage: UNK
  2. ELIQUIS [Concomitant]
     Active Substance: APIXABAN
     Indication: PRODUCT USED FOR UNKNOWN INDICATION
     Dosage: TAKE 0.5 TABLET 2 TIMES PER DAY
     Route: 048
  3. SERTRALINE [Concomitant]
     Active Substance: SERTRALINE HYDROCHLORIDE
     Indication: AFFECTIVE DISORDER
     Dosage: TAKE 1.5 TABLET 1 TIME PERDAY
     Route: 048

REACTIONS (1)
  - Hypersensitivity [Unknown]
